FAERS Safety Report 5829130-4 (Version None)
Quarter: 2008Q2

REPORT INFORMATION
  Report Type: 
  Country: None (occurrence: None)
  Receive Date: 20080601
  Receipt Date: 20080213
  Transmission Date: 20081010
  Serious: No
  Sender: FDA-Public Use
  Company Number: US200802003254

PATIENT
  Age: 41 Year
  Sex: Female
  Weight: 122.4 kg

DRUGS (5)
  1. BYETTA [Suspect]
     Indication: TYPE 2 DIABETES MELLITUS
     Dosage: 5 UG, DAILY (1/D), SUBCUTANEOUS ; 10 UG, 2/D, SUBCUTANEOUS ; 12 U, 2/D, SUBCUTANEOUS
     Route: 058
     Dates: start: 20070101, end: 20070101
  2. BYETTA [Suspect]
     Indication: TYPE 2 DIABETES MELLITUS
     Dosage: 5 UG, DAILY (1/D), SUBCUTANEOUS ; 10 UG, 2/D, SUBCUTANEOUS ; 12 U, 2/D, SUBCUTANEOUS
     Route: 058
     Dates: start: 20070101, end: 20070101
  3. BYETTA [Suspect]
     Indication: TYPE 2 DIABETES MELLITUS
     Dosage: 5 UG, DAILY (1/D), SUBCUTANEOUS ; 10 UG, 2/D, SUBCUTANEOUS ; 12 U, 2/D, SUBCUTANEOUS
     Route: 058
     Dates: start: 20070101
  4. LANTUS [Concomitant]
  5. HUMALOG MIX 75/25 [Concomitant]

REACTIONS (5)
  - ACCIDENTAL OVERDOSE [None]
  - BLOOD GLUCOSE INCREASED [None]
  - DECREASED APPETITE [None]
  - MEDICATION ERROR [None]
  - WEIGHT INCREASED [None]
